FAERS Safety Report 23616078 (Version 1)
Quarter: 2024Q1

REPORT INFORMATION
  Report Type: Report from Study
  Country: JP (occurrence: JP)
  Receive Date: 20240311
  Receipt Date: 20240311
  Transmission Date: 20240409
  Serious: Yes (Hospitalization, Other)
  Sender: FDA-Public Use
  Company Number: JP-GILEAD-2024-0664443

PATIENT
  Age: 3 Decade
  Sex: Male

DRUGS (54)
  1. BICTEGRAVIR\EMTRICITABINE\TENOFOVIR ALAFENAMIDE [Suspect]
     Active Substance: BICTEGRAVIR\EMTRICITABINE\TENOFOVIR ALAFENAMIDE
     Indication: HIV infection
     Dosage: 1 DOSAGE FORM, QD
     Route: 048
     Dates: start: 20211013
  2. COBICISTAT\ELVITEGRAVIR\EMTRICITABINE\TENOFOVIR [Suspect]
     Active Substance: COBICISTAT\ELVITEGRAVIR\EMTRICITABINE\TENOFOVIR
     Indication: HIV infection
     Dosage: UNK
     Route: 065
  3. FLAGYL [Suspect]
     Active Substance: METRONIDAZOLE\METRONIDAZOLE HYDROCHLORIDE
     Indication: Pyrexia
     Dosage: UNK
     Route: 048
     Dates: start: 20211014, end: 20211027
  4. FLAGYL [Suspect]
     Active Substance: METRONIDAZOLE\METRONIDAZOLE HYDROCHLORIDE
     Dosage: UNK
     Route: 048
     Dates: start: 20211115, end: 20211119
  5. ACETAMINOPHEN [Concomitant]
     Active Substance: ACETAMINOPHEN
     Indication: Prophylaxis
     Dosage: UNK
     Dates: start: 20210915, end: 20211027
  6. ACETAMINOPHEN [Concomitant]
     Active Substance: ACETAMINOPHEN
     Dosage: UNK
     Dates: start: 20210918, end: 20211027
  7. ACETAMINOPHEN [Concomitant]
     Active Substance: ACETAMINOPHEN
     Dosage: UNK
     Dates: start: 20220531, end: 20220604
  8. DEXTROMETHORPHAN HYDROBROMIDE [Concomitant]
     Active Substance: DEXTROMETHORPHAN HYDROBROMIDE
     Dosage: UNK
     Dates: start: 20210915, end: 202110
  9. TRAZODONE HYDROCHLORIDE [Concomitant]
     Active Substance: TRAZODONE HYDROCHLORIDE
     Indication: Prophylaxis
     Dosage: UNK
     Dates: start: 20210915, end: 202111
  10. AMPICILLIN SODIUM\SULBACTAM SODIUM [Concomitant]
     Active Substance: AMPICILLIN SODIUM\SULBACTAM SODIUM
     Dosage: 3 G
     Dates: start: 20210915, end: 20211014
  11. SODIUM CHLORIDE [Concomitant]
     Active Substance: SODIUM CHLORIDE
     Indication: Medication dilution
     Dosage: UNK
     Dates: start: 20210915, end: 20211014
  12. SODIUM CHLORIDE [Concomitant]
     Active Substance: SODIUM CHLORIDE
     Indication: Fluid replacement
     Dosage: 50 ML
     Dates: start: 20210930, end: 20211017
  13. SODIUM CHLORIDE [Concomitant]
     Active Substance: SODIUM CHLORIDE
     Dosage: 100 ML
     Dates: start: 20211102, end: 20211115
  14. SODIUM CHLORIDE [Concomitant]
     Active Substance: SODIUM CHLORIDE
     Dosage: 500 ML
     Dates: start: 20211102, end: 20211105
  15. SODIUM CHLORIDE [Concomitant]
     Active Substance: SODIUM CHLORIDE
     Dosage: 100 ML
     Dates: start: 20211102, end: 20211108
  16. SODIUM CHLORIDE [Concomitant]
     Active Substance: SODIUM CHLORIDE
     Dosage: 100 ML
     Dates: start: 20211113, end: 20211121
  17. SODIUM CHLORIDE [Concomitant]
     Active Substance: SODIUM CHLORIDE
     Dosage: 50 ML
     Dates: start: 20211016, end: 20211016
  18. SODIUM CHLORIDE [Concomitant]
     Active Substance: SODIUM CHLORIDE
     Dosage: UNK
     Dates: start: 20210916, end: 20211003
  19. SODIUM CHLORIDE [Concomitant]
     Active Substance: SODIUM CHLORIDE
     Dosage: UNK
     Dates: start: 20210916, end: 20211017
  20. SODIUM CHLORIDE [Concomitant]
     Active Substance: SODIUM CHLORIDE
     Indication: Prophylaxis
     Dosage: UNK
     Dates: start: 20211102, end: 20211121
  21. ATOVAQUONE [Concomitant]
     Active Substance: ATOVAQUONE
     Indication: Prophylaxis
     Dosage: UNK
     Dates: start: 20210916, end: 20221025
  22. FLURBIPROFEN AXETIL [Concomitant]
     Active Substance: FLURBIPROFEN AXETIL
     Dosage: UNK
     Dates: start: 20210916, end: 20211003
  23. XYLOCAINE [Concomitant]
     Active Substance: LIDOCAINE HYDROCHLORIDE
     Indication: Analgesic therapy
     Dosage: 20 ML
     Dates: start: 20210917, end: 20211006
  24. AZULENE [SODIUM GUALENATE HYDRATE] [Concomitant]
     Indication: Analgesic therapy
     Dosage: 5 DOSAGE FORM
     Dates: start: 20210917, end: 20211006
  25. WATER PURIFIED [Concomitant]
     Indication: Analgesic therapy
     Dosage: 480 ML
     Dates: start: 20210917, end: 20211006
  26. BENZETHONIUM CHLORIDE [Concomitant]
     Active Substance: BENZETHONIUM CHLORIDE
     Indication: Prophylaxis
     Dosage: UNK
     Dates: start: 20210917, end: 202203
  27. HEMOPORISON [Concomitant]
     Dosage: UNK
     Dates: start: 20210918, end: 20211027
  28. HEMOPORISON [Concomitant]
     Dosage: UNK
     Dates: start: 20210918, end: 202111
  29. TRAMADOL [Concomitant]
     Active Substance: TRAMADOL\TRAMADOL HYDROCHLORIDE
     Indication: Prophylaxis
     Dosage: UNK
     Dates: start: 20210918, end: 20220125
  30. TRAMADOL [Concomitant]
     Active Substance: TRAMADOL\TRAMADOL HYDROCHLORIDE
     Indication: Herpes zoster
  31. ACETAMINOPHEN [Concomitant]
     Active Substance: ACETAMINOPHEN
     Dosage: 500 MG
     Dates: start: 20210918, end: 20211102
  32. VALGANCICLOVIR HYDROCHLORIDE [Concomitant]
     Active Substance: VALGANCICLOVIR HYDROCHLORIDE
     Indication: Prophylaxis
     Dosage: UNK
     Dates: start: 20210924, end: 20211001
  33. FEXOFENADINE HYDROCHLORIDE [Concomitant]
     Active Substance: FEXOFENADINE HYDROCHLORIDE
     Dosage: UNK
     Dates: start: 20210927, end: 20220111
  34. CALCIUM CHLORIDE\POTASSIUM CHLORIDE\SODIUM ACETATE\SODIUM CHLORIDE [Concomitant]
     Active Substance: CALCIUM CHLORIDE\POTASSIUM CHLORIDE\SODIUM ACETATE\SODIUM CHLORIDE
     Indication: Fluid replacement
     Dosage: 500 ML
     Dates: start: 20210928, end: 20211003
  35. FILGRASTIM [Concomitant]
     Active Substance: FILGRASTIM
     Dosage: 75 UG
     Route: 058
     Dates: start: 20210924, end: 20210926
  36. FILGRASTIM [Concomitant]
     Active Substance: FILGRASTIM
     Dosage: 150 UG
     Route: 058
     Dates: start: 20210927, end: 20210929
  37. FILGRASTIM [Concomitant]
     Active Substance: FILGRASTIM
     Dosage: 300 UG
     Route: 041
     Dates: start: 20210930, end: 20211017
  38. FILGRASTIM [Concomitant]
     Active Substance: FILGRASTIM
     Dosage: UNK
     Route: 041
     Dates: start: 20211113, end: 20211121
  39. FILGRASTIM [Concomitant]
     Active Substance: FILGRASTIM
     Dosage: 300 UG
     Route: 058
     Dates: start: 20211125, end: 20211207
  40. AUGMENTIN [Concomitant]
     Active Substance: AMOXICILLIN\CLAVULANATE POTASSIUM
     Dosage: UNK
     Dates: start: 20211018, end: 20211112
  41. AUGMENTIN [Concomitant]
     Active Substance: AMOXICILLIN\CLAVULANATE POTASSIUM
     Dosage: UNK
     Dates: start: 20211119, end: 20220110
  42. AMOXICILLIN [Concomitant]
     Active Substance: AMOXICILLIN
     Dosage: UNK
     Dates: start: 20211018, end: 20211112
  43. AMOXICILLIN [Concomitant]
     Active Substance: AMOXICILLIN
     Dosage: UNK
     Dates: start: 20211119, end: 20220110
  44. PRIMPERAN [Concomitant]
     Active Substance: METOCLOPRAMIDE HYDROCHLORIDE
     Indication: Vomiting
     Dosage: 10 MG
     Dates: start: 20211014, end: 20211118
  45. PRIMPERAN [Concomitant]
     Active Substance: METOCLOPRAMIDE HYDROCHLORIDE
     Dosage: UNK
     Route: 041
     Dates: start: 20211118
  46. HEPARINOID [Concomitant]
     Dosage: UNK
     Dates: start: 20211113, end: 2022
  47. POLARAMINE [Concomitant]
     Active Substance: DEXCHLORPHENIRAMINE MALEATE
     Dosage: UNK
     Dates: start: 20211214, end: 2022
  48. ATARAX-P [HYDROXYZINE HYDROCHLORIDE] [Concomitant]
     Dosage: 50 MG
     Dates: start: 20211016, end: 20211016
  49. DIPHENHYDRAMINE [Concomitant]
     Active Substance: DIPHENHYDRAMINE
     Dosage: UNK
     Dates: start: 20211126, end: 202112
  50. METOCLOPRAMIDE [Concomitant]
     Active Substance: METOCLOPRAMIDE
     Dosage: UNK
     Dates: start: 20211018, end: 20211118
  51. METOCLOPRAMIDE [Concomitant]
     Active Substance: METOCLOPRAMIDE
     Dosage: UNK
     Route: 048
     Dates: start: 20211119
  52. HEPARIN SODIUM [Concomitant]
     Active Substance: HEPARIN SODIUM
     Indication: Prophylaxis
     Dosage: UNK
     Dates: start: 20210916, end: 20211014
  53. CEFTRIAXONE [Concomitant]
     Active Substance: CEFTRIAXONE\CEFTRIAXONE SODIUM
     Dosage: 2 G
     Dates: start: 20210916, end: 20211017
  54. FLUCONAZOLE [Concomitant]
     Active Substance: FLUCONAZOLE
     Dosage: UNK
     Dates: start: 20210917, end: 20211016

REACTIONS (11)
  - Herpes zoster disseminated [Recovering/Resolving]
  - Lung abscess [Not Recovered/Not Resolved]
  - Infectious pleural effusion [Not Recovered/Not Resolved]
  - Pyrexia [Recovering/Resolving]
  - Vomiting [Recovering/Resolving]
  - Head discomfort [Recovering/Resolving]
  - Proctitis [Recovering/Resolving]
  - Rectal abscess [Recovering/Resolving]
  - Oral candidiasis [Recovering/Resolving]
  - Bacteraemia [Recovering/Resolving]
  - Herpes zoster [Recovering/Resolving]

NARRATIVE: CASE EVENT DATE: 20211031
